FAERS Safety Report 14148356 (Version 1)
Quarter: 2017Q4

REPORT INFORMATION
  Report Type: Spontaneous
  Country: IT (occurrence: IT)
  Receive Date: 20171101
  Receipt Date: 20171101
  Transmission Date: 20180321
  Serious: Yes (Hospitalization)
  Sender: FDA-Public Use
  Company Number: IT-JNJFOC-20171028775

PATIENT
  Age: 84 Year
  Sex: Male

DRUGS (4)
  1. IBUPROFENE [Suspect]
     Active Substance: IBUPROFEN
     Route: 065
  2. IBUPROFENE [Suspect]
     Active Substance: IBUPROFEN
     Indication: HAEMARTHROSIS
     Route: 065
     Dates: start: 20051030, end: 20051105
  3. CIPROFLOXACIN. [Suspect]
     Active Substance: CIPROFLOXACIN
     Indication: OTITIS MEDIA ACUTE
     Route: 048
     Dates: start: 20051030, end: 20051103
  4. PIROXICAM. [Suspect]
     Active Substance: PIROXICAM
     Indication: PRODUCT USED FOR UNKNOWN INDICATION
     Route: 048
     Dates: start: 20051030, end: 20051105

REACTIONS (1)
  - Erythema multiforme [Recovering/Resolving]

NARRATIVE: CASE EVENT DATE: 20051105
